FAERS Safety Report 25048876 (Version 1)
Quarter: 2025Q1

REPORT INFORMATION
  Report Type: Spontaneous
  Country: US (occurrence: US)
  Receive Date: 20250307
  Receipt Date: 20250307
  Transmission Date: 20250409
  Serious: Yes (Hospitalization, Other)
  Sender: JOHNSON AND JOHNSON
  Company Number: US-JNJFOC-20250278464

PATIENT
  Sex: Female

DRUGS (1)
  1. CARVYKTI [Suspect]
     Active Substance: CILTACABTAGENE AUTOLEUCEL
     Indication: Plasma cell myeloma
     Route: 065

REACTIONS (12)
  - Cardiac arrest [Unknown]
  - End stage renal disease [Not Recovered/Not Resolved]
  - Seizure [Unknown]
  - Cardiac dysfunction [Unknown]
  - Cerebrovascular accident [Unknown]
  - Plasma cell myeloma [Unknown]
  - Immune effector cell-associated neurotoxicity syndrome [Recovering/Resolving]
  - Hallucination [Unknown]
  - Pyrexia [Recovered/Resolved]
  - Pain [Unknown]
  - Hypotension [Unknown]
  - Oxygen saturation decreased [Unknown]
